FAERS Safety Report 7816334-4 (Version None)
Quarter: 2011Q4

REPORT INFORMATION
  Report Type: 
  Country: None (occurrence: None)
  Receive Date: 20111017
  Receipt Date: 20111007
  Transmission Date: 20120403
  Serious: Yes (Hospitalization)
  Sender: FDA-Public Use
  Company Number: US-BIOGENIDEC-2011BI005379

PATIENT
  Age: 23 Year
  Sex: Female

DRUGS (6)
  1. SKELAXIN [Concomitant]
     Dates: end: 20110101
  2. DEPAKOTE [Concomitant]
     Dates: end: 20110101
  3. MULTI-VITAMINS [Concomitant]
  4. TYSABRI [Suspect]
     Indication: MULTIPLE SCLEROSIS
     Route: 042
     Dates: start: 20080115, end: 20110127
  5. INSULIN [Concomitant]
  6. FOLIC ACID [Concomitant]

REACTIONS (3)
  - PREGNANCY [None]
  - MATERNAL EXPOSURE DURING PREGNANCY [None]
  - CAESAREAN SECTION [None]
